FAERS Safety Report 13953773 (Version 2)
Quarter: 2017Q3

REPORT INFORMATION
  Report Type: Report from Study
  Country: CA (occurrence: CA)
  Receive Date: 20170911
  Receipt Date: 20170912
  Transmission Date: 20171128
  Serious: Yes (Other)
  Sender: FDA-Public Use
  Company Number: CA-ROCHE-ITM201503IM011413

PATIENT
  Age: 76 Year
  Sex: Male
  Weight: 104 kg

DRUGS (20)
  1. ESBRIET [Interacting]
     Active Substance: PIRFENIDONE
     Dosage: 534 MG- 267 MG- 534 MG
     Route: 048
     Dates: start: 20150116
  2. ESBRIET [Interacting]
     Active Substance: PIRFENIDONE
     Route: 048
     Dates: start: 20150330
  3. ESBRIET [Interacting]
     Active Substance: PIRFENIDONE
     Route: 048
     Dates: start: 20140707
  4. ESBRIET [Interacting]
     Active Substance: PIRFENIDONE
     Route: 048
     Dates: start: 20140925, end: 20141006
  5. VALERIAN [Interacting]
     Active Substance: VALERIAN
     Indication: SLEEP DISORDER
     Route: 065
  6. ESBRIET [Interacting]
     Active Substance: PIRFENIDONE
     Dosage: 534 MG- 534 MG- 801 MG
     Route: 048
     Dates: start: 20150203
  7. ESBRIET [Interacting]
     Active Substance: PIRFENIDONE
     Route: 048
     Dates: start: 20150127
  8. ESBRIET [Interacting]
     Active Substance: PIRFENIDONE
     Route: 048
     Dates: start: 20150217, end: 20150327
  9. ESBRIET [Interacting]
     Active Substance: PIRFENIDONE
     Route: 048
     Dates: start: 20150406
  10. ESBRIET [Interacting]
     Active Substance: PIRFENIDONE
     Dosage: DOSE INTERRUPTED
     Route: 048
     Dates: start: 20150420, end: 20150804
  11. ESBRIET [Interacting]
     Active Substance: PIRFENIDONE
     Dosage: 801MG- 534MG- 801MG
     Route: 048
     Dates: start: 20150210
  12. CANDESARTAN. [Concomitant]
     Active Substance: CANDESARTAN
  13. ESBRIET [Interacting]
     Active Substance: PIRFENIDONE
     Route: 048
     Dates: start: 20140730
  14. ESBRIET [Interacting]
     Active Substance: PIRFENIDONE
     Dosage: 267 MG- 267 MG- 234 MG
     Route: 048
     Dates: start: 20150107
  15. ESBRIET [Suspect]
     Active Substance: PIRFENIDONE
     Indication: IDIOPATHIC PULMONARY FIBROSIS
     Route: 048
     Dates: start: 20140623
  16. ESBRIET [Interacting]
     Active Substance: PIRFENIDONE
     Route: 048
     Dates: start: 20150818
  17. PANTOPRAZOLE [Concomitant]
     Active Substance: PANTOPRAZOLE
  18. ESBRIET [Interacting]
     Active Substance: PIRFENIDONE
     Route: 048
     Dates: start: 20150817
  19. ESBRIET [Interacting]
     Active Substance: PIRFENIDONE
     Route: 048
     Dates: start: 20141215
  20. CRESTOR [Concomitant]
     Active Substance: ROSUVASTATIN CALCIUM

REACTIONS (23)
  - Erythema [Not Recovered/Not Resolved]
  - Lymphadenopathy [Unknown]
  - Nausea [Unknown]
  - Dyspepsia [Recovering/Resolving]
  - Photosensitivity reaction [Unknown]
  - Gastroenteritis viral [Unknown]
  - Rhinorrhoea [Not Recovered/Not Resolved]
  - Abdominal pain upper [Recovered/Resolved]
  - Faeces discoloured [Unknown]
  - Pulmonary artery dilatation [Unknown]
  - Pruritus [Not Recovered/Not Resolved]
  - Fatigue [Unknown]
  - Eczema [Unknown]
  - Aortic calcification [Unknown]
  - Drug interaction [Unknown]
  - Rash erythematous [Unknown]
  - Arteriosclerosis coronary artery [Unknown]
  - Diarrhoea [Unknown]
  - Oropharyngeal pain [Not Recovered/Not Resolved]
  - Pneumonia [Not Recovered/Not Resolved]
  - Depressed mood [Unknown]
  - Somnolence [Unknown]
  - Vomiting [Unknown]

NARRATIVE: CASE EVENT DATE: 20150327
